FAERS Safety Report 21091618 (Version 2)
Quarter: 2022Q3

REPORT INFORMATION
  Report Type: Other
  Country: US (occurrence: None)
  Receive Date: 20220717
  Receipt Date: 20220811
  Transmission Date: 20221027
  Serious: Yes (Hospitalization)
  Sender: FDA-Public Use
  Company Number: US-ROCHE-3134308

PATIENT
  Age: 44 Year
  Sex: Female

DRUGS (6)
  1. OCRELIZUMAB [Suspect]
     Active Substance: OCRELIZUMAB
     Indication: Primary progressive multiple sclerosis
     Dosage: ON 22/OCT/2021, FIRST DOSE ADMINISTERED AND ON 05/NOV/2021, SECOND DOSE ADMINISTERED. THERAPY START
     Route: 042
  2. CYMBALTA [Concomitant]
     Active Substance: DULOXETINE HYDROCHLORIDE
     Dates: start: 20220215, end: 20220407
  3. AMBIEN [Concomitant]
     Active Substance: ZOLPIDEM TARTRATE
     Dates: start: 20220407
  4. ATIVAN [Concomitant]
     Active Substance: LORAZEPAM
     Dates: start: 20220215, end: 20220407
  5. VITAMIN D3 [Concomitant]
     Active Substance: CHOLECALCIFEROL
     Indication: Hypovitaminosis
     Dates: start: 20210828
  6. PEPCID [Concomitant]
     Active Substance: FAMOTIDINE
     Dates: start: 20210721

REACTIONS (1)
  - Optic neuritis [Recovered/Resolved]

NARRATIVE: CASE EVENT DATE: 20220328
